FAERS Safety Report 7122292-0 (Version None)
Quarter: 2010Q4

REPORT INFORMATION
  Report Type: 
  Country: None (occurrence: None)
  Receive Date: 20101124
  Receipt Date: 20101117
  Transmission Date: 20110411
  Serious: Yes (Other)
  Sender: FDA-Public Use
  Company Number: US-ABBOTT-10P-163-0686156-00

PATIENT
  Sex: Male
  Weight: 152.09 kg

DRUGS (2)
  1. BIAXIN [Suspect]
     Indication: SINUSITIS
     Dates: start: 20101022, end: 20101023
  2. BIAXIN [Suspect]
     Indication: COUGH

REACTIONS (5)
  - DIZZINESS [None]
  - HEART RATE INCREASED [None]
  - PALPITATIONS [None]
  - SUPRAVENTRICULAR TACHYCARDIA [None]
  - TREMOR [None]
